FAERS Safety Report 7079197-3 (Version None)
Quarter: 2010Q4

REPORT INFORMATION
  Report Type: 
  Country: None (occurrence: None)
  Receive Date: 20101102
  Receipt Date: 20101022
  Transmission Date: 20110411
  Serious: Yes (Other)
  Sender: FDA-Public Use
  Company Number: B0679477A

PATIENT

DRUGS (1)
  1. VALTREX [Suspect]
     Route: 048

REACTIONS (2)
  - DEAFNESS [None]
  - DRUG TOXICITY [None]
